FAERS Safety Report 20698130 (Version 2)
Quarter: 2022Q2

REPORT INFORMATION
  Report Type: Spontaneous
  Country: JP (occurrence: JP)
  Receive Date: 20220412
  Receipt Date: 20220613
  Transmission Date: 20220721
  Serious: Yes (Hospitalization)
  Sender: FDA-Public Use
  Company Number: JP-ZAMBON-202200371COR

PATIENT
  Age: 79 Year
  Sex: Male

DRUGS (11)
  1. SAFINAMIDE [Suspect]
     Active Substance: SAFINAMIDE
     Indication: Parkinson^s disease
     Route: 048
     Dates: start: 20201030, end: 2020
  2. SAFINAMIDE [Suspect]
     Active Substance: SAFINAMIDE
     Route: 048
     Dates: start: 20210420
  3. SAFINAMIDE [Suspect]
     Active Substance: SAFINAMIDE
     Route: 048
     Dates: start: 2021
  4. SUVOREXANT [Suspect]
     Active Substance: SUVOREXANT
     Indication: Product used for unknown indication
     Dosage: NOT PROVIDED
     Dates: end: 20210505
  5. FLUNITRAZEPAM [Concomitant]
     Active Substance: FLUNITRAZEPAM
     Route: 048
     Dates: start: 20210430, end: 20210506
  6. LUNESTA [Concomitant]
     Active Substance: ESZOPICLONE
     Route: 048
     Dates: start: 20210514
  7. DAYVIGO [Concomitant]
     Active Substance: LEMBOREXANT
     Route: 048
     Dates: start: 20210514
  8. BROTIZOLAM [Concomitant]
     Active Substance: BROTIZOLAM
     Indication: Insomnia
     Route: 048
     Dates: start: 20210412
  9. RISPERIDONE [Concomitant]
     Active Substance: RISPERIDONE
     Indication: Insomnia
     Route: 048
     Dates: start: 20210412
  10. LEVODOPA [Concomitant]
     Active Substance: LEVODOPA
     Indication: Parkinson^s disease
     Dosage: NOT PROVIDED
     Dates: end: 20210505
  11. LORAZEPAM [Concomitant]
     Active Substance: LORAZEPAM
     Dosage: NOT PROVIDED
     Route: 048

REACTIONS (7)
  - Femur fracture [Unknown]
  - Physical assault [Recovered/Resolved]
  - Aggression [Recovered/Resolved]
  - Fall [Unknown]
  - Pollakiuria [Recovered/Resolved]
  - Fracture pain [Unknown]
  - Jaundice [Unknown]

NARRATIVE: CASE EVENT DATE: 20210424
